FAERS Safety Report 4676607-3 (Version None)
Quarter: 2005Q2

REPORT INFORMATION
  Report Type: 
  Country: None (occurrence: None)
  Receive Date: 20050526
  Receipt Date: 20050422
  Transmission Date: 20051028
  Serious: Yes (Death)
  Sender: FDA-Public Use
  Company Number: 10906

PATIENT
  Sex: 0

DRUGS (7)
  1. CARBOPLATIN [Suspect]
     Indication: NEOPLASM MALIGNANT
     Dosage: 1300 MG/M2 OTH INJ
  2. DOCETAXEL [Suspect]
     Indication: NEOPLASM MALIGNANT
     Dosage: 550 MG/M2 OTH INJ
  3. MELPHALAN [Suspect]
     Indication: NEOPLASM MALIGNANT
     Dosage: 165 MG/M2 OTH INJ
  4. LEVOFLOXACIN [Concomitant]
  5. ACYCLOVIR [Concomitant]
  6. FLUCONAZOLE [Concomitant]
  7. DEXAMETHASONE [Concomitant]

REACTIONS (1)
  - HEPATIC NECROSIS [None]
